FAERS Safety Report 9162180 (Version 1)
Quarter: 2013Q1

REPORT INFORMATION
  Report Type: Spontaneous
  Country: NL (occurrence: NL)
  Receive Date: 20130314
  Receipt Date: 20130314
  Transmission Date: 20140127
  Serious: Yes (Hospitalization)
  Sender: FDA-Public Use
  Company Number: NL-BAYER-2013-029170

PATIENT
  Age: 32 Year
  Sex: Female
  Weight: 69.98 kg

DRUGS (2)
  1. MIRENA [Suspect]
     Indication: CONTRACEPTION
     Dosage: 20 MCG/24HR, CONT
     Route: 015
     Dates: start: 20111210
  2. SERTRALINE [Concomitant]
     Dosage: 200 MG, QD
     Dates: start: 201201

REACTIONS (2)
  - Adnexal torsion [Recovering/Resolving]
  - Ovarian cyst [Recovering/Resolving]
